FAERS Safety Report 14498914 (Version 1)
Quarter: 2018Q1

REPORT INFORMATION
  Report Type: Spontaneous
  Country: US (occurrence: US)
  Receive Date: 20180207
  Receipt Date: 20180207
  Transmission Date: 20180509
  Serious: No
  Sender: FDA-Public Use
  Company Number: US-PFIZER INC-2018050202

PATIENT
  Age: 80 Year
  Sex: Female
  Weight: 82.99 kg

DRUGS (2)
  1. TALWIN [Suspect]
     Active Substance: PENTAZOCINE LACTATE
     Dosage: UNK
  2. TALC [Suspect]
     Active Substance: TALC
     Dosage: UNK

REACTIONS (1)
  - Drug hypersensitivity [Unknown]
